FAERS Safety Report 17874458 (Version 1)
Quarter: 2020Q2

REPORT INFORMATION
  Report Type: Spontaneous
  Country: US (occurrence: US)
  Receive Date: 20200609
  Receipt Date: 20200609
  Transmission Date: 20200714
  Serious: No
  Sender: FDA-Public Use
  Company Number: US-EMD SERONO-9167270

PATIENT
  Age: 46 Year
  Sex: Female

DRUGS (1)
  1. REBIF [Suspect]
     Active Substance: INTERFERON BETA-1A
     Indication: MULTIPLE SCLEROSIS
     Route: 058
     Dates: start: 20140812

REACTIONS (6)
  - Rash macular [Unknown]
  - Hypoacusis [Unknown]
  - Alopecia [Unknown]
  - Nail disorder [Unknown]
  - Pigmentation lip [Unknown]
  - Tinnitus [Unknown]

NARRATIVE: CASE EVENT DATE: 201408
